FAERS Safety Report 24152151 (Version 2)
Quarter: 2024Q3

REPORT INFORMATION
  Report Type: Spontaneous
  Country: US (occurrence: US)
  Receive Date: 20240730
  Receipt Date: 20240810
  Transmission Date: 20241016
  Serious: Yes (Life-Threatening, Hospitalization)
  Sender: TEVA
  Company Number: US-TEVA-VS-3223144

PATIENT
  Sex: Female

DRUGS (1)
  1. BUPROPION [Suspect]
     Active Substance: BUPROPION
     Indication: Intentional overdose
     Route: 065

REACTIONS (11)
  - Near death experience [Recovering/Resolving]
  - Encephalopathy [Recovering/Resolving]
  - Brain injury [Recovering/Resolving]
  - Cerebral disorder [Recovering/Resolving]
  - Intentional overdose [Unknown]
  - Status epilepticus [Recovering/Resolving]
  - Electrocardiogram QRS complex prolonged [Recovering/Resolving]
  - Cognitive disorder [Recovering/Resolving]
  - Hypotension [Recovering/Resolving]
  - Electrocardiogram QT prolonged [Recovering/Resolving]
  - Metabolic disorder [Recovering/Resolving]
